FAERS Safety Report 25023322 (Version 1)
Quarter: 2025Q1

REPORT INFORMATION
  Report Type: Spontaneous
  Country: US (occurrence: US)
  Receive Date: 20250228
  Receipt Date: 20250228
  Transmission Date: 20250408
  Serious: No
  Sender: SUNOVION
  Company Number: US-SMPA-2025SPA001288AA

PATIENT

DRUGS (14)
  1. ORGOVYX [Suspect]
     Active Substance: RELUGOLIX
     Indication: Prostate cancer
     Dosage: 360 MG, SINGLE
     Route: 048
     Dates: start: 20250130, end: 20250131
  2. ORGOVYX [Suspect]
     Active Substance: RELUGOLIX
     Dosage: 120 MG, QD
     Route: 048
     Dates: start: 20250131
  3. XTANDI [Concomitant]
     Active Substance: ENZALUTAMIDE
     Route: 065
  4. ELIQUIS [Concomitant]
     Active Substance: APIXABAN
     Route: 065
  5. CHLORTHALIDONE [Concomitant]
     Active Substance: CHLORTHALIDONE
     Route: 065
  6. DIGOXIN [Concomitant]
     Active Substance: DIGOXIN
     Route: 065
  7. DILTIAZEM HYDROCHLORIDE [Concomitant]
     Active Substance: DILTIAZEM HYDROCHLORIDE
     Route: 065
  8. METOPROLOL SUCCINATE [Concomitant]
     Active Substance: METOPROLOL SUCCINATE
     Route: 065
  9. POTASSIUM CHLORIDE EXTENDED RELEASE [Concomitant]
     Active Substance: POTASSIUM CHLORIDE
     Route: 065
  10. ROSUVASTATIN CALCIUM [Concomitant]
     Active Substance: ROSUVASTATIN CALCIUM
     Route: 065
  11. DUPIXENT [Concomitant]
     Active Substance: DUPILUMAB
     Route: 065
  12. VITAMIN B COMPLEX [Concomitant]
     Active Substance: CYANOCOBALAMIN\DEXPANTHENOL\NIACINAMIDE\PYRIDOXINE HYDROCHLORIDE\RIBOFLAVIN 5^-PHOSPHATE SODIUM\THIA
     Route: 065
  13. IRON [Concomitant]
     Active Substance: IRON
     Route: 065
  14. MAGNESIUM MALATE [Concomitant]
     Active Substance: MAGNESIUM MALATE
     Route: 065

REACTIONS (1)
  - Myalgia [Unknown]
